FAERS Safety Report 10176626 (Version 1)
Quarter: 2014Q2

REPORT INFORMATION
  Report Type: Spontaneous
  Country: IT (occurrence: IT)
  Receive Date: 20140516
  Receipt Date: 20140516
  Transmission Date: 20141212
  Serious: Yes (Other)
  Sender: FDA-Public Use
  Company Number: IT-ASTRAZENECA-2014SE32233

PATIENT
  Age: 58 Year
  Sex: Male

DRUGS (5)
  1. CRESTOR [Suspect]
     Route: 048
  2. CARDIOASPIRIN [Suspect]
     Route: 065
  3. ENAPREN [Suspect]
     Route: 065
  4. RHYTMONORM [Concomitant]
     Indication: EXTRASYSTOLES
  5. LUCEN [Concomitant]
     Indication: GASTRIC DISORDER
     Dosage: 40

REACTIONS (2)
  - Ventricular arrhythmia [Unknown]
  - Atrial fibrillation [Unknown]
